FAERS Safety Report 8846034 (Version 1)
Quarter: 2012Q4

REPORT INFORMATION
  Report Type: 
  Country: US (occurrence: US)
  Receive Date: 20121017
  Receipt Date: 20121017
  Transmission Date: 20130627
  Serious: Yes (Death)
  Sender: FDA-Public Use
  Company Number: US-ROCHE-1122219

PATIENT
  Sex: Male

DRUGS (1)
  1. NUTROPIN [Suspect]
     Indication: HYPOPITUITARISM
     Route: 058

REACTIONS (3)
  - Death [Fatal]
  - Overdose [Unknown]
  - Injection site erythema [Unknown]
